FAERS Safety Report 17450696 (Version 1)
Quarter: 2020Q1

REPORT INFORMATION
  Report Type: Spontaneous
  Country: US (occurrence: US)
  Receive Date: 20200221
  Receipt Date: 20200221
  Transmission Date: 20200409
  Serious: No
  Sender: FDA-Public Use
  Company Number: None

PATIENT
  Age: 25 Year
  Sex: Female
  Weight: 65.25 kg

DRUGS (11)
  1. PROMETHAZINE [Concomitant]
     Active Substance: PROMETHAZINE HYDROCHLORIDE
  2. ALBUTEROL. [Concomitant]
     Active Substance: ALBUTEROL
  3. BIOTIN [Concomitant]
     Active Substance: BIOTIN
  4. TOPIRAMATE. [Concomitant]
     Active Substance: TOPIRAMATE
  5. UBREVLY [Concomitant]
  6. GABAPENTIN. [Concomitant]
     Active Substance: GABAPENTIN
  7. EMGALITY [Suspect]
     Active Substance: GALCANEZUMAB-GNLM
     Indication: MIGRAINE
     Dosage: ?          QUANTITY:1 INJECTION(S);OTHER FREQUENCY:ONCE A MONTH;?
     Route: 058
     Dates: start: 20190428, end: 20200221
  8. HYDROCODONE [Concomitant]
     Active Substance: HYDROCODONE
  9. TIZANADINE [Concomitant]
     Active Substance: TIZANIDINE
  10. MAGNESIUM [Concomitant]
     Active Substance: MAGNESIUM
  11. B2 [Concomitant]

REACTIONS (3)
  - Myalgia [None]
  - Lethargy [None]
  - Back pain [None]

NARRATIVE: CASE EVENT DATE: 20200130
